FAERS Safety Report 4651524-3 (Version None)
Quarter: 2005Q2

REPORT INFORMATION
  Report Type: 
  Country: None (occurrence: None)
  Receive Date: 20050404
  Receipt Date: 20041109
  Transmission Date: 20051028
  Serious: No
  Sender: FDA-Public Use
  Company Number: USA041183671

PATIENT
  Sex: Male

DRUGS (3)
  1. CYMBALTA [Suspect]
     Indication: DIABETIC NEUROPATHY
     Dosage: 60 MG DAY
     Dates: start: 20041001, end: 20041101
  2. CYMBALTA [Suspect]
     Indication: PAIN
     Dosage: 60 MG DAY
     Dates: start: 20041001, end: 20041101
  3. PAXIL [Concomitant]

REACTIONS (4)
  - AFFECT LABILITY [None]
  - AGGRESSION [None]
  - FEELING JITTERY [None]
  - IRRITABILITY [None]
